FAERS Safety Report 7537409-3 (Version None)
Quarter: 2011Q2

REPORT INFORMATION
  Report Type: 
  Country: None (occurrence: None)
  Receive Date: 20110603
  Receipt Date: 20110518
  Transmission Date: 20111010
  Serious: Yes (Death, Hospitalization)
  Sender: FDA-Public Use
  Company Number: 2011MA006129

PATIENT
  Age: 54 Year
  Sex: Male

DRUGS (3)
  1. METHOTREXATE [Concomitant]
  2. HYDROCORTISONE 2.5% CREAM [Suspect]
     Indication: CHEMOTHERAPY
     Dosage: 12.5 MG
  3. CYTARABINE [Concomitant]

REACTIONS (4)
  - SEPTIC SHOCK [None]
  - FEBRILE NEUTROPENIA [None]
  - FUNGAL TEST POSITIVE [None]
  - WHITE BLOOD CELL COUNT DECREASED [None]
